FAERS Safety Report 5613206-0 (Version None)
Quarter: 2008Q1

REPORT INFORMATION
  Report Type: 
  Country: None (occurrence: None)
  Receive Date: 20080129
  Receipt Date: 20080111
  Transmission Date: 20080703
  Serious: Yes (Other)
  Sender: FDA-Public Use
  Company Number: 79855

PATIENT
  Age: 78 Year
  Sex: Male

DRUGS (13)
  1. ALVESCO [Suspect]
     Indication: ASTHMA
     Dosage: DAILY DOSE 1 PUFF INHALATION, 2/DAY 1 PUFF INHALATION
     Route: 055
     Dates: start: 20061214, end: 20071001
  2. ALVESCO [Suspect]
     Indication: ASTHMA
     Dosage: DAILY DOSE 1 PUFF INHALATION, 2/DAY 1 PUFF INHALATION
     Route: 055
     Dates: start: 20071001
  3. DIABETA [Concomitant]
  4. ALTACE [Concomitant]
  5. PERCOCET [Concomitant]
  6. METFORMIN                 850 METFORMIN [Concomitant]
  7. SALBUTAMOL              SALBUTAMOL [Concomitant]
  8. TYLENOL #3                    CODEINE PHOSPHATE PARACETAMOL [Concomitant]
  9. CIALIS [Concomitant]
  10. LOSEC                           OMEPRAZOLE MAGNESIUM [Concomitant]
  11. AVANDIA [Concomitant]
  12. LEVOTHYROXINE SODIUM [Concomitant]
  13. TOPICORT [Concomitant]

REACTIONS (1)
  - PHARYNGEAL CANDIDIASIS [None]
